FAERS Safety Report 6058466-X (Version None)
Quarter: 2009Q1

REPORT INFORMATION
  Report Type: 
  Country: None (occurrence: None)
  Receive Date: 20090128
  Receipt Date: 20090128
  Transmission Date: 20090719
  Serious: Yes (Hospitalization)
  Sender: FDA-Public Use
  Company Number: None

PATIENT
  Age: 75 Year

DRUGS (2)
  1. WARFARIN SODIUM [Suspect]
     Indication: ATRIAL FIBRILLATION
     Dosage: 5 MG EVERY DAY PO
     Route: 048
     Dates: start: 20080508, end: 20081216
  2. WARFARIN SODIUM [Suspect]
     Indication: VASCULAR OPERATION
     Dosage: 5 MG EVERY DAY PO
     Route: 048
     Dates: start: 20080508, end: 20081216

REACTIONS (4)
  - ANAEMIA [None]
  - COAGULOPATHY [None]
  - HAEMORRHAGE [None]
  - PHARYNGEAL HAEMATOMA [None]
